FAERS Safety Report 17894982 (Version 2)
Quarter: 2020Q2

REPORT INFORMATION
  Report Type: Report from Study
  Country: US (occurrence: US)
  Receive Date: 20200615
  Receipt Date: 20200618
  Transmission Date: 20200714
  Serious: Yes (Hospitalization)
  Sender: FDA-Public Use
  Company Number: US-BAUSCH-BL-2020-016999

PATIENT
  Age: 40 Year
  Sex: Male

DRUGS (3)
  1. XIFAXAN [Suspect]
     Active Substance: RIFAXIMIN
     Indication: HEPATIC ENCEPHALOPATHY
     Route: 048
     Dates: start: 201711
  2. LACTULOSE. [Concomitant]
     Active Substance: LACTULOSE
     Indication: PRODUCT USED FOR UNKNOWN INDICATION
     Route: 065
     Dates: end: 202006
  3. LACTULOSE. [Concomitant]
     Active Substance: LACTULOSE
     Dosage: DOSE INCREASED
     Route: 065
     Dates: start: 202006

REACTIONS (4)
  - Hepatic cirrhosis [Unknown]
  - Ammonia increased [Unknown]
  - Haematemesis [Unknown]
  - Delusion [Unknown]

NARRATIVE: CASE EVENT DATE: 202001
